FAERS Safety Report 11125636 (Version 3)
Quarter: 2015Q3

REPORT INFORMATION
  Report Type: Spontaneous
  Country: US (occurrence: US)
  Receive Date: 20150520
  Receipt Date: 20150702
  Transmission Date: 20151125
  Serious: Yes (Hospitalization, Disabling, Other)
  Sender: FDA-Public Use
  Company Number: US-009507513-1204USA00508

PATIENT
  Sex: Female

DRUGS (11)
  1. VITAMIN D [Concomitant]
     Active Substance: CHOLECALCIFEROL
     Indication: ROUTINE HEALTH MAINTENANCE
     Dosage: 400-800 IU, QD
     Dates: start: 2004, end: 20091106
  2. FLUTICASONE [Concomitant]
     Active Substance: FLUTICASONE\FLUTICASONE PROPIONATE
     Indication: ASTHMA
     Dosage: UNK
     Dates: start: 2003, end: 20091106
  3. ACTONEL [Suspect]
     Active Substance: RISEDRONATE SODIUM
     Indication: OSTEOPOROSIS
     Dosage: 35 MG, QW
     Route: 048
     Dates: start: 200409, end: 200710
  4. ALENDRONATE SODIUM. [Suspect]
     Active Substance: ALENDRONATE SODIUM
     Indication: OSTEOPOROSIS
     Dosage: 70 MG, QW
     Route: 048
     Dates: start: 20080912, end: 201012
  5. LOVASTATIN. [Concomitant]
     Active Substance: LOVASTATIN
     Indication: HYPERCHOLESTEROLAEMIA
     Dosage: UNK
     Dates: start: 200706, end: 20091106
  6. BONIVA [Suspect]
     Active Substance: IBANDRONATE SODIUM
     Indication: OSTEOPOROSIS
     Dosage: 150 MG, QM
     Route: 048
     Dates: start: 200605, end: 200608
  7. NASACORT [Concomitant]
     Active Substance: TRIAMCINOLONE ACETONIDE
     Indication: RHINITIS ALLERGIC
     Dosage: UNK
     Dates: start: 2003, end: 20091106
  8. FOSAMAX PLUS D [Suspect]
     Active Substance: ALENDRONATE SODIUM\CHOLECALCIFEROL
     Indication: OSTEOPOROSIS
     Dosage: 70 MG/2800 IU, QW
     Route: 048
     Dates: start: 20070711, end: 200812
  9. CALCIUM (UNSPECIFIED) [Concomitant]
     Active Substance: CALCIUM
     Indication: ROUTINE HEALTH MAINTENANCE
     Dosage: 1200-1500 MG, QD
     Dates: start: 2004, end: 20091106
  10. PROTONIX [Concomitant]
     Active Substance: PANTOPRAZOLE SODIUM
     Indication: PRODUCT USED FOR UNKNOWN INDICATION
     Dosage: UNK
     Dates: start: 2009, end: 2010
  11. SINGULAIR [Concomitant]
     Active Substance: MONTELUKAST SODIUM
     Indication: ASTHMA
     Dosage: UNK
     Route: 048
     Dates: start: 2003, end: 20091106

REACTIONS (24)
  - Uterine dilation and curettage [Unknown]
  - Joint stiffness [Not Recovered/Not Resolved]
  - Barrett^s oesophagus [Unknown]
  - Pollakiuria [Unknown]
  - Coccidioidomycosis [Recovered/Resolved]
  - Metaplasia [Unknown]
  - Flatulence [Unknown]
  - Spinal osteoarthritis [Unknown]
  - Femur fracture [Recovering/Resolving]
  - Abdominal distension [Unknown]
  - Deep vein thrombosis [Unknown]
  - Osteoporosis [Not Recovered/Not Resolved]
  - Libido decreased [Unknown]
  - Calcium deficiency [Unknown]
  - Sleep apnoea syndrome [Unknown]
  - Low turnover osteopathy [Not Recovered/Not Resolved]
  - Pulmonary granuloma [Unknown]
  - Osteopenia [Unknown]
  - Essential tremor [Unknown]
  - Photophobia [Unknown]
  - Atrophy [Unknown]
  - Fall [Unknown]
  - Fungal infection [Unknown]
  - Nasal congestion [Unknown]

NARRATIVE: CASE EVENT DATE: 2009
